FAERS Safety Report 4345715-9 (Version None)
Quarter: 2004Q2

REPORT INFORMATION
  Report Type: 
  Country: None (occurrence: None)
  Receive Date: 20040421
  Receipt Date: 20040408
  Transmission Date: 20050107
  Serious: Yes (Other)
  Sender: FDA-Public Use
  Company Number: A005559

PATIENT
  Age: 81 Year
  Sex: Male
  Weight: 80.7403 kg

DRUGS (1)
  1. PROCARDIA XL [Suspect]
     Indication: HYPERTENSION
     Dosage: 30 MG DAILY ORAL
     Route: 048
     Dates: start: 19950101

REACTIONS (4)
  - BLOOD PRESSURE FLUCTUATION [None]
  - HEADACHE [None]
  - PAIN IN EXTREMITY [None]
  - PHARMACEUTICAL PRODUCT COMPLAINT [None]
